FAERS Safety Report 9069163 (Version 1)
Quarter: 2013Q1

REPORT INFORMATION
  Report Type: Spontaneous
  Country: US (occurrence: US)
  Receive Date: 20130215
  Receipt Date: 20130215
  Transmission Date: 20140127
  Serious: Yes (Death)
  Sender: FDA-Public Use
  Company Number: US-BANPHARM-20130792

PATIENT
  Age: 55 Year
  Sex: Female

DRUGS (5)
  1. DIPHENHYDRAMINE [Suspect]
     Route: 048
  2. MORPHINE [Suspect]
  3. ACETAMINOPHEN\HYDROCODONE [Suspect]
  4. AMITRIPTYLINE [Suspect]
  5. CITALOPRAM [Suspect]

REACTIONS (2)
  - Death [Fatal]
  - Drug abuse [Fatal]
